FAERS Safety Report 16500152 (Version 1)
Quarter: 2019Q3

REPORT INFORMATION
  Report Type: Spontaneous
  Country: US (occurrence: US)
  Receive Date: 20190628
  Receipt Date: 20190628
  Transmission Date: 20191004
  Serious: No
  Sender: FDA-Public Use
  Company Number: None

PATIENT
  Age: 51 Year
  Sex: Female
  Weight: 112.5 kg

DRUGS (19)
  1. LEVOTHYROXINE. [Concomitant]
     Active Substance: LEVOTHYROXINE
  2. VITAMIN D [Concomitant]
     Active Substance: VITAMIN D NOS
  3. NARATRIPTAN [Concomitant]
     Active Substance: NARATRIPTAN HYDROCHLORIDE
  4. MELOXICAM. [Concomitant]
     Active Substance: MELOXICAM
  5. EMGALITY [Concomitant]
     Active Substance: GALCANEZUMAB-GNLM
  6. PRILOSEC [Concomitant]
     Active Substance: OMEPRAZOLE MAGNESIUM
  7. ATORVASTATIN [Concomitant]
     Active Substance: ATORVASTATIN
  8. RIZATRIPTAN. [Concomitant]
     Active Substance: RIZATRIPTAN
  9. VITAMIN D [Concomitant]
     Active Substance: VITAMIN D NOS
  10. DIAZEPAM. [Concomitant]
     Active Substance: DIAZEPAM
  11. EMGALITY [Suspect]
     Active Substance: GALCANEZUMAB-GNLM
     Indication: MIGRAINE
     Dosage: ?          QUANTITY:2 INJECTION(S);OTHER FREQUENCY:1 TIME PER MONTH;?
     Route: 030
  12. FETZIMA [Concomitant]
     Active Substance: LEVOMILNACIPRAN HYDROCHLORIDE
  13. TOPIRAMATE. [Concomitant]
     Active Substance: TOPIRAMATE
  14. SEROQUEL [Concomitant]
     Active Substance: QUETIAPINE FUMARATE
  15. CARBADOPA/LEVODOPA [Concomitant]
  16. CARBAMAZEPINE XR [Concomitant]
  17. HYDROXYZINE [Concomitant]
     Active Substance: HYDROXYZINE HYDROCHLORIDE
  18. OXYBUTYNIN. [Concomitant]
     Active Substance: OXYBUTYNIN CHLORIDE
  19. AMLODIPINE [Concomitant]
     Active Substance: AMLODIPINE BESYLATE

REACTIONS (2)
  - Impaired work ability [None]
  - Vomiting [None]

NARRATIVE: CASE EVENT DATE: 20190422
